FAERS Safety Report 8135492-8 (Version None)
Quarter: 2012Q1

REPORT INFORMATION
  Report Type: 
  Country: None (occurrence: None)
  Receive Date: 20120214
  Receipt Date: 20111028
  Transmission Date: 20120608
  Serious: Yes (Other)
  Sender: FDA-Public Use
  Company Number: US-ROCHE-GNE239782

PATIENT
  Sex: Female

DRUGS (7)
  1. EPINEPHRINE [Concomitant]
  2. PREDNISONE TAB [Concomitant]
     Indication: PHARYNGEAL OEDEMA
     Dosage: UNK, QD
  3. XOLAIR [Suspect]
     Indication: URTICARIA CHRONIC
  4. PREDNISONE TAB [Concomitant]
     Indication: URTICARIA
  5. XOLAIR [Suspect]
     Indication: ASTHMA
     Dosage: 150 MG, 1/MONTH
     Route: 058
     Dates: start: 20061010
  6. IMMUNOTHERAPY (ANTIGEN UNKNOWN) [Concomitant]
     Indication: SEASONAL ALLERGY
  7. ALBUTEROL [Concomitant]

REACTIONS (4)
  - BASOPHIL COUNT INCREASED [None]
  - ASTHMA [None]
  - URTICARIA [None]
  - BLOOD THYROID STIMULATING HORMONE INCREASED [None]
